FAERS Safety Report 24890862 (Version 1)
Quarter: 2025Q1

REPORT INFORMATION
  Report Type: Report from Study
  Country: ZA (occurrence: ZA)
  Receive Date: 20250127
  Receipt Date: 20250127
  Transmission Date: 20250408
  Serious: Yes (Hospitalization)
  Sender: ALEXION PHARMACEUTICALS
  Company Number: ZA-AstraZeneca-CH-00788543A

PATIENT
  Age: 62 Year

DRUGS (6)
  1. BUDESONIDE\FORMOTEROL [Suspect]
     Active Substance: BUDESONIDE\FORMOTEROL
  2. Pendine [Concomitant]
  3. Pendine [Concomitant]
     Indication: Hypertension
  4. VALSARTAN [Concomitant]
     Active Substance: VALSARTAN
     Indication: Hypertension
  5. WARFARIN [Concomitant]
     Active Substance: WARFARIN
  6. ECOTRIN [Concomitant]
     Active Substance: ASPIRIN

REACTIONS (1)
  - Renal disorder [Unknown]
